FAERS Safety Report 6835904-3 (Version None)
Quarter: 2010Q3

REPORT INFORMATION
  Report Type: 
  Country: None (occurrence: None)
  Receive Date: 20100712
  Receipt Date: 20100712
  Transmission Date: 20110219
  Serious: Yes (Death)
  Sender: FDA-Public Use
  Company Number: None

PATIENT
  Age: 71 Year
  Sex: Female
  Weight: 58.45 kg

DRUGS (2)
  1. SORAFENIB 200 MG- 1 TABLET DAILY [Suspect]
  2. CAPECITABINE [Suspect]

REACTIONS (5)
  - COMA [None]
  - DRUG EFFECT DECREASED [None]
  - GALLBLADDER CANCER METASTATIC [None]
  - MALIGNANT NEOPLASM PROGRESSION [None]
  - NEUROPATHY PERIPHERAL [None]
